FAERS Safety Report 24376980 (Version 1)
Quarter: 2024Q3

REPORT INFORMATION
  Report Type: Spontaneous
  Country: US (occurrence: None)
  Receive Date: 20240928
  Receipt Date: 20240928
  Transmission Date: 20241017
  Serious: Yes (Life-Threatening, Hospitalization, Disabling, Other)
  Sender: Public
  Company Number: None

PATIENT
  Age: 10 Year
  Sex: Female

DRUGS (5)
  1. AMOXICILLIN [Suspect]
     Active Substance: AMOXICILLIN
     Indication: Pharyngitis streptococcal
     Dosage: OTHER QUANTITY : 6.2 TEASPOON(S)?FREQUENCY : TWICE A DAY?
     Route: 048
     Dates: start: 20240418, end: 20240419
  2. flonase [Concomitant]
  3. FLOVENT [Concomitant]
     Active Substance: FLUTICASONE PROPIONATE
  4. SINGULAIR [Concomitant]
     Active Substance: MONTELUKAST SODIUM
  5. ERYTHROMYCIN [Concomitant]

REACTIONS (5)
  - Stevens-Johnson syndrome [None]
  - Bronchitis chronic [None]
  - Fluid retention [None]
  - Renal failure [None]
  - Respiratory failure [None]

NARRATIVE: CASE EVENT DATE: 20240419
